FAERS Safety Report 24200637 (Version 3)
Quarter: 2025Q4

REPORT INFORMATION
  Report Type: Spontaneous
  Country: US (occurrence: US)
  Receive Date: 20240812
  Receipt Date: 20251209
  Transmission Date: 20260118
  Serious: No
  Sender: ANI
  Company Number: US-ANIPHARMA-2024-US-036350

PATIENT
  Sex: Male

DRUGS (12)
  1. CORTICOTROPIN [Suspect]
     Active Substance: CORTICOTROPIN
     Indication: Sarcoidosis
     Dosage: INJECT 80 UNITS (1ML) SUBCUTANEOUSLY 2 TIMES A WEEK / EVERY OTHER DAY
     Route: 058
  2. FAMOTIDINE [Concomitant]
     Active Substance: FAMOTIDINE
  3. LOVASTATIN [Concomitant]
     Active Substance: LOVASTATIN
  4. GEMFIBROZIL [Concomitant]
     Active Substance: GEMFIBROZIL
  5. CETIRIZINE HYDROCHLORIDE [Concomitant]
     Active Substance: CETIRIZINE HYDROCHLORIDE
  6. METAXALONE [Concomitant]
     Active Substance: METAXALONE
  7. PREDNISONE [Concomitant]
     Active Substance: PREDNISONE
  8. TYLENOL/CODEINE #3 [Concomitant]
  9. ZOFRAN [Concomitant]
     Active Substance: ONDANSETRON HYDROCHLORIDE
  10. TESTOSTERONE CYPIONATE [Concomitant]
     Active Substance: TESTOSTERONE CYPIONATE
  11. ATENOLOL [Concomitant]
     Active Substance: ATENOLOL
  12. AMITRIPTYLINE HYDROCHLORIDE [Concomitant]
     Active Substance: AMITRIPTYLINE HYDROCHLORIDE

REACTIONS (4)
  - Therapeutic product effect incomplete [Unknown]
  - Diarrhoea [Unknown]
  - Fatigue [Unknown]
  - Product administration error [Recovered/Resolved]
